FAERS Safety Report 17406391 (Version 1)
Quarter: 2020Q1

REPORT INFORMATION
  Report Type: Spontaneous
  Country: US (occurrence: US)
  Receive Date: 20200212
  Receipt Date: 20200212
  Transmission Date: 20200409
  Serious: No
  Sender: FDA-Public Use
  Company Number: US-ALLERGAN-1916620US

PATIENT
  Sex: Female

DRUGS (7)
  1. TYLENOL [Suspect]
     Active Substance: ACETAMINOPHEN
     Indication: MIGRAINE
  2. VIIBRYD [Suspect]
     Active Substance: VILAZODONE HYDROCHLORIDE
     Indication: DEPRESSION
     Dosage: 20 MG
     Route: 048
     Dates: start: 201904
  3. MOTRIN [Suspect]
     Active Substance: IBUPROFEN
     Indication: PRODUCT USED FOR UNKNOWN INDICATION
     Dosage: OCCASIONALLY
     Route: 065
  4. SYNTHROID [Suspect]
     Active Substance: LEVOTHYROXINE SODIUM
     Indication: PRODUCT USED FOR UNKNOWN INDICATION
     Dosage: UNK MG
     Route: 048
  5. TRIPTAN (OXITRIPTAN) [Suspect]
     Active Substance: OXITRIPTAN
     Indication: MIGRAINE
     Dosage: ONCE OR TWICE A MONTH
     Route: 048
  6. BUSPIRONE [Suspect]
     Active Substance: BUSPIRONE HYDROCHLORIDE
     Indication: MIGRAINE
     Dosage: UNK
     Route: 065
  7. TYLENOL [Suspect]
     Active Substance: ACETAMINOPHEN
     Indication: ARTHRITIS
     Dosage: UNK, PRN
     Route: 048
     Dates: start: 201904

REACTIONS (3)
  - Crying [Recovering/Resolving]
  - Contusion [Unknown]
  - Drug ineffective [Unknown]
